FAERS Safety Report 13579901 (Version 1)
Quarter: 2017Q2

REPORT INFORMATION
  Report Type: Spontaneous
  Country: IN (occurrence: IN)
  Receive Date: 20170525
  Receipt Date: 20170525
  Transmission Date: 20170830
  Serious: Yes (Other)
  Sender: FDA-Public Use
  Company Number: ALCN2017IN003501

PATIENT
  Age: 49 Year
  Sex: Female

DRUGS (2)
  1. TRIAMCINOLONE ACETONIDE. [Suspect]
     Active Substance: TRIAMCINOLONE ACETONIDE
     Indication: UVEITIS
     Dosage: POSTERIOR SUBTENON IN BOTH EYES
     Route: 047
  2. TRIAMCINOLONE ACETONIDE. [Suspect]
     Active Substance: TRIAMCINOLONE ACETONIDE
     Dosage: 1 ML, IN LEFT EYE
     Route: 047

REACTIONS (4)
  - Blindness unilateral [Unknown]
  - Restlessness [Recovered/Resolved]
  - Chest pain [Recovered/Resolved]
  - Retinal artery occlusion [Unknown]
